FAERS Safety Report 4395234-9 (Version None)
Quarter: 2004Q3

REPORT INFORMATION
  Report Type: 
  Country: None (occurrence: None)
  Receive Date: 20040706
  Receipt Date: 20040624
  Transmission Date: 20050211
  Serious: Yes (Hospitalization)
  Sender: FDA-Public Use
  Company Number: 2004-06-1629

PATIENT
  Age: 48 Year
  Sex: Female

DRUGS (1)
  1. AERIUS (DESLORATADINE) TABLETS ^LIKE CLARINEX^ [Suspect]
     Indication: RHINITIS SEASONAL
     Dosage: 5 MG QD ORAL
     Route: 048
     Dates: start: 20040513, end: 20040513

REACTIONS (1)
  - CONVULSION [None]
